FAERS Safety Report 6247561-8 (Version None)
Quarter: 2009Q2

REPORT INFORMATION
  Report Type: 
  Country: None (occurrence: None)
  Receive Date: 20090626
  Receipt Date: 20090602
  Transmission Date: 20091009
  Serious: Yes (Hospitalization, Other)
  Sender: FDA-Public Use
  Company Number: US-PFIZER INC-2009163777

PATIENT
  Sex: Male
  Weight: 84.3 kg

DRUGS (30)
  1. BLINDED *NO SUBJECT DRUG [Suspect]
     Indication: ASPERGILLOSIS
     Dosage: 200 MG, 1X/DAY
     Route: 042
     Dates: start: 20090127, end: 20090127
  2. BLINDED *PLACEBO [Suspect]
     Indication: ASPERGILLOSIS
     Dosage: 200 MG, 1X/DAY
     Route: 042
     Dates: start: 20090127, end: 20090127
  3. BLINDED ANIDULAFUNGIN [Suspect]
     Indication: ASPERGILLOSIS
     Dosage: 200 MG, 1X/DAY
     Route: 042
     Dates: start: 20090127, end: 20090127
  4. BLINDED *NO SUBJECT DRUG [Suspect]
     Dosage: 100 MG, 1X/DAY
     Route: 042
     Dates: start: 20090128, end: 20090217
  5. BLINDED *PLACEBO [Suspect]
     Dosage: 100 MG, 1X/DAY
     Route: 042
     Dates: start: 20090128, end: 20090217
  6. BLINDED ANIDULAFUNGIN [Suspect]
     Dosage: 100 MG, 1X/DAY
     Route: 042
     Dates: start: 20090128, end: 20090217
  7. VORICONAZOLE [Suspect]
     Indication: ASPERGILLOSIS
     Dosage: 505 MG, 2X/DAY
     Route: 042
     Dates: start: 20090127, end: 20090127
  8. VORICONAZOLE [Suspect]
     Dosage: 337 MG, 2X/DAY
     Route: 042
     Dates: start: 20090128, end: 20090206
  9. VORICONAZOLE [Suspect]
     Dosage: 400 MG, 2X/DAY
     Dates: start: 20090206, end: 20090217
  10. CLOBETASOL [Concomitant]
     Indication: RASH
     Dosage: UNK
     Dates: start: 20090122
  11. BUPROPION [Concomitant]
     Indication: SMOKING CESSATION THERAPY
     Dosage: UNK
     Dates: start: 20090122
  12. AZITHROMYCIN [Concomitant]
     Indication: PROPHYLAXIS
     Dosage: UNK
  13. GUAIFENESIN [Concomitant]
     Indication: COUGH
     Dosage: UNK
     Route: 048
  14. LORAZEPAM [Concomitant]
     Indication: NAUSEA
     Dosage: UNK
     Route: 042
  15. ONDANSETRON [Concomitant]
     Indication: NAUSEA
     Dosage: UNK
     Route: 042
  16. TYLENOL (CAPLET) [Concomitant]
     Indication: PYREXIA
     Dosage: UNK
     Route: 048
  17. LASIX [Concomitant]
     Indication: PROPHYLAXIS
     Dosage: UNK
     Route: 042
  18. METOPROLOL [Concomitant]
     Indication: CARDIAC FAILURE
     Dosage: UNK
     Route: 048
  19. CELLCEPT [Concomitant]
     Indication: PROPHYLAXIS
     Dosage: UNK
     Route: 042
  20. TACROLIMUS [Concomitant]
     Indication: PROPHYLAXIS
     Dosage: UNK
     Route: 042
  21. LOPERAMIDE HYDROCHLORIDE [Concomitant]
     Indication: DIARRHOEA
     Dosage: UNK
     Route: 048
  22. MAGNESIUM [Concomitant]
     Indication: HYPOMAGNESAEMIA
     Route: 042
  23. MORPHINE [Concomitant]
     Indication: BLADDER SPASM
     Route: 042
  24. DITROPAN [Concomitant]
     Indication: BLADDER SPASM
     Route: 048
  25. ALBUTEROL [Concomitant]
     Indication: DYSPNOEA
  26. ADVAIR HFA [Concomitant]
     Indication: DYSPNOEA
     Route: 055
  27. COREG [Concomitant]
     Indication: CARDIAC FAILURE
     Route: 048
  28. SPIRONOLACTONE [Concomitant]
     Indication: CARDIAC FAILURE
     Route: 048
  29. NEUPOGEN [Concomitant]
     Indication: NEUTROPENIA
     Route: 058
  30. LISINOPRIL [Concomitant]
     Indication: CARDIAC FAILURE
     Route: 048

REACTIONS (2)
  - DYSPNOEA [None]
  - RESPIRATORY DISTRESS [None]
